FAERS Safety Report 18749823 (Version 4)
Quarter: 2021Q1

REPORT INFORMATION
  Report Type: Spontaneous
  Country: EE (occurrence: EE)
  Receive Date: 20210117
  Receipt Date: 20210315
  Transmission Date: 20210419
  Serious: Yes (Death, Hospitalization, Other)
  Sender: FDA-Public Use
  Company Number: EE-JNJFOC-20210120472

PATIENT
  Age: 66 Year
  Sex: Male

DRUGS (1)
  1. XARELTO [Suspect]
     Active Substance: RIVAROXABAN
     Indication: PRODUCT USED FOR UNKNOWN INDICATION
     Dosage: 20 MG
     Route: 048
     Dates: start: 2019

REACTIONS (13)
  - Stupor [Fatal]
  - Gastritis erosive [Not Recovered/Not Resolved]
  - Skin discolouration [Unknown]
  - Encephalitis [Fatal]
  - Abdominal pain [Not Recovered/Not Resolved]
  - Somnolence [Fatal]
  - Tongue disorder [Unknown]
  - Feeding disorder [Unknown]
  - Medical induction of coma [Fatal]
  - Noninfective encephalitis [Fatal]
  - Dysphagia [Not Recovered/Not Resolved]
  - Speech disorder [Unknown]
  - Leukocytosis [Unknown]

NARRATIVE: CASE EVENT DATE: 202101
